FAERS Safety Report 17295486 (Version 1)
Quarter: 2020Q1

REPORT INFORMATION
  Report Type: Spontaneous
  Country: US (occurrence: US)
  Receive Date: 20200121
  Receipt Date: 20200121
  Transmission Date: 20200409
  Serious: Yes (Other)
  Sender: FDA-Public Use
  Company Number: US-PFIZER INC-2020015048

PATIENT
  Age: 64 Year
  Sex: Female

DRUGS (2)
  1. METHOTREXATE SODIUM. [Suspect]
     Active Substance: METHOTREXATE SODIUM
     Indication: ACUTE MYELOMONOCYTIC LEUKAEMIA
  2. METHOTREXATE SODIUM. [Suspect]
     Active Substance: METHOTREXATE SODIUM
     Indication: ACUTE LEUKAEMIA
     Dosage: 15 MG, UNK (VIA LUMBAR PUNCTURE AND THEN THROUGH VENTRICULAR RESERVOIR FOR 2 ADDITIONAL DOSES)
     Route: 037

REACTIONS (2)
  - Cytopenia [Recovered/Resolved]
  - Anaemia megaloblastic [Recovered/Resolved]
